FAERS Safety Report 21375821 (Version 1)
Quarter: 2022Q3

REPORT INFORMATION
  Report Type: Report from Study
  Country: US (occurrence: US)
  Receive Date: 20220926
  Receipt Date: 20220926
  Transmission Date: 20221027
  Serious: Yes (Other)
  Sender: FDA-Public Use
  Company Number: US-JAZZ-2022-US-030207

PATIENT
  Age: 59 Year
  Sex: Female

DRUGS (13)
  1. XYWAV [Suspect]
     Active Substance: CALCIUM OXYBATE\MAGNESIUM OXYBATE\POTASSIUM OXYBATE\SODIUM OXYBATE
     Indication: Narcolepsy
  2. XYWAV [Suspect]
     Active Substance: CALCIUM OXYBATE\MAGNESIUM OXYBATE\POTASSIUM OXYBATE\SODIUM OXYBATE
     Indication: Cataplexy
  3. XYWAV [Suspect]
     Active Substance: CALCIUM OXYBATE\MAGNESIUM OXYBATE\POTASSIUM OXYBATE\SODIUM OXYBATE
     Indication: Somnolence
  4. ABILIFY [Concomitant]
     Active Substance: ARIPIPRAZOLE
     Indication: Product used for unknown indication
     Dosage: 0000
     Dates: start: 20150924
  5. VERAPAMIL [Concomitant]
     Active Substance: VERAPAMIL HYDROCHLORIDE
     Indication: Product used for unknown indication
     Dosage: UNK UNK, QD
     Dates: start: 20150924
  6. LISINOPRIL [Concomitant]
     Active Substance: LISINOPRIL
     Indication: Product used for unknown indication
     Dosage: 0000
     Dates: start: 20150928
  7. ALLEGRA ALLERGY [Concomitant]
     Active Substance: FEXOFENADINE HYDROCHLORIDE
     Indication: Product used for unknown indication
     Dosage: 0000
     Dates: start: 20150928
  8. SUNOSI [Concomitant]
     Active Substance: SOLRIAMFETOL
     Indication: Product used for unknown indication
     Dosage: 0000
     Dates: start: 20191201
  9. GLIMEPIRIDE [Concomitant]
     Active Substance: GLIMEPIRIDE
     Indication: Product used for unknown indication
     Dosage: 0000
     Dates: start: 20200116
  10. WAKIX [Concomitant]
     Active Substance: PITOLISANT HYDROCHLORIDE
     Indication: Product used for unknown indication
     Dosage: 0000
     Dates: start: 20200825
  11. HYDROCHLOROTHIAZIDE [Concomitant]
     Active Substance: HYDROCHLOROTHIAZIDE
     Indication: Product used for unknown indication
     Dosage: 0000
     Dates: start: 20210315
  12. GABAPENTIN [Concomitant]
     Active Substance: GABAPENTIN
     Indication: Product used for unknown indication
     Dosage: 0000
     Dates: start: 20220909
  13. CELEBREX [Concomitant]
     Active Substance: CELECOXIB
     Indication: Product used for unknown indication
     Dosage: 0000
     Dates: start: 20220909

REACTIONS (2)
  - Knee operation [Unknown]
  - Gallbladder operation [Unknown]

NARRATIVE: CASE EVENT DATE: 20220908
